FAERS Safety Report 7921823-8 (Version None)
Quarter: 2011Q4

REPORT INFORMATION
  Report Type: 
  Country: None (occurrence: None)
  Receive Date: 20111117
  Receipt Date: 20111103
  Transmission Date: 20120403
  Serious: Yes (Other)
  Sender: FDA-Public Use
  Company Number: BR-US-EMD SERONO, INC.-7094823

PATIENT
  Sex: Female

DRUGS (8)
  1. FLUOXETINE HCL [Concomitant]
  2. LEVOTHYROXINE SODIUM [Concomitant]
  3. FOLIC ACID [Concomitant]
  4. PROPRANOLOL [Concomitant]
  5. REBIF [Suspect]
     Indication: RELAPSING-REMITTING MULTIPLE SCLEROSIS
  6. HYDROCHLOROTHIAZIDE [Concomitant]
  7. CLONAZEPAM [Concomitant]
  8. FERROUS SULFATE TAB [Concomitant]

REACTIONS (4)
  - VOMITING [None]
  - LABYRINTHITIS [None]
  - DIZZINESS [None]
  - MULTIPLE SCLEROSIS RELAPSE [None]
